FAERS Safety Report 9398592 (Version 2)
Quarter: 2013Q3

REPORT INFORMATION
  Report Type: Report from Study
  Country: CA (occurrence: CA)
  Receive Date: 20130712
  Receipt Date: 20130802
  Transmission Date: 20140515
  Serious: Yes (Death)
  Sender: FDA-Public Use
  Company Number: CA-ABBOTT-13P-028-1118327-00

PATIENT
  Sex: Male
  Weight: 89.89 kg

DRUGS (10)
  1. LUPRON DEPOT [Suspect]
     Indication: PROSTATE CANCER
     Route: 030
     Dates: start: 20121218
  2. CASODEX [Suspect]
     Indication: PRODUCT USED FOR UNKNOWN INDICATION
  3. ELIGARD [Suspect]
     Indication: PRODUCT USED FOR UNKNOWN INDICATION
  4. ASA [Concomitant]
     Indication: PRODUCT USED FOR UNKNOWN INDICATION
  5. DOCUSATE SODIUM [Concomitant]
     Indication: PRODUCT USED FOR UNKNOWN INDICATION
     Route: 048
  6. FEBUXOSTAT [Concomitant]
     Indication: PRODUCT USED FOR UNKNOWN INDICATION
     Route: 048
  7. FLUTAMIDE [Concomitant]
     Indication: PRODUCT USED FOR UNKNOWN INDICATION
     Route: 048
  8. GLICLAZIDE MR [Concomitant]
     Indication: PRODUCT USED FOR UNKNOWN INDICATION
     Route: 048
  9. METOPROLOL [Concomitant]
     Indication: PRODUCT USED FOR UNKNOWN INDICATION
     Route: 048
  10. TAMSULOSIN [Concomitant]
     Indication: PRODUCT USED FOR UNKNOWN INDICATION
     Route: 048

REACTIONS (30)
  - Arthralgia [Fatal]
  - Back pain [Fatal]
  - Metastases to spine [Fatal]
  - Metastases to lung [Fatal]
  - Osteoarthritis [Fatal]
  - Exostosis [Fatal]
  - Intervertebral disc degeneration [Fatal]
  - Spinal osteoarthritis [Fatal]
  - Prostate cancer metastatic [Fatal]
  - Mass [Fatal]
  - Hypercalcaemia [Fatal]
  - Lethargy [Fatal]
  - Hypersomnia [Fatal]
  - Confusional state [Fatal]
  - Device related infection [Unknown]
  - Bone lesion [Fatal]
  - Skin lesion [Fatal]
  - Tumour invasion [Fatal]
  - Pathological fracture [Fatal]
  - Pleural effusion [Fatal]
  - Renal failure [Fatal]
  - Urinary tract infection [Fatal]
  - Urethral stenosis [Fatal]
  - Bladder neck obstruction [Fatal]
  - Purulent discharge [Fatal]
  - Metastases to spine [Fatal]
  - Confusional state [Recovered/Resolved]
  - Drug intolerance [Unknown]
  - Malaise [Recovered/Resolved]
  - Drug resistance [Unknown]
